FAERS Safety Report 4382773-X (Version None)
Quarter: 2004Q2

REPORT INFORMATION
  Report Type: 
  Country: None (occurrence: None)
  Receive Date: 20040617
  Receipt Date: 20040602
  Transmission Date: 20050107
  Serious: Yes (Hospitalization)
  Sender: FDA-Public Use
  Company Number: 193265

PATIENT
  Age: 30 Year
  Sex: Male
  Weight: 77.1115 kg

DRUGS (1)
  1. AVONEX [Suspect]
     Indication: MULTIPLE SCLEROSIS
     Dosage: 30 MCG QW IM
     Route: 030
     Dates: start: 20031119

REACTIONS (8)
  - ACCIDENT [None]
  - FALL [None]
  - FATIGUE [None]
  - HEAD INJURY [None]
  - HYPOVENTILATION [None]
  - PARALYSIS [None]
  - SPINAL HAEMATOMA [None]
  - THORACIC VERTEBRAL FRACTURE [None]
